FAERS Safety Report 4342789-6 (Version None)
Quarter: 2004Q2

REPORT INFORMATION
  Report Type: 
  Country: None (occurrence: None)
  Receive Date: 20040419
  Receipt Date: 20040419
  Transmission Date: 20050107
  Serious: Yes (Hospitalization)
  Sender: FDA-Public Use
  Company Number: None

PATIENT
  Sex: Male
  Weight: 50.8029 kg

DRUGS (4)
  1. PACLITAXEL [Suspect]
     Indication: NON-SMALL CELL LUNG CANCER
     Dosage: 85 MG IV Q WEEK X 7
     Route: 042
     Dates: start: 20040311, end: 20040408
  2. GLUTAMINE [Suspect]
  3. XRT [Concomitant]
  4. CARBOPLATIN [Suspect]
     Indication: NON-SMALL CELL LUNG CANCER
     Dosage: 240 MG IV QWK X 7
     Route: 042
     Dates: start: 20040311, end: 20040408

REACTIONS (3)
  - ANAEMIA [None]
  - DEHYDRATION [None]
  - HYPONATRAEMIA [None]
